FAERS Safety Report 6631154-4 (Version None)
Quarter: 2010Q1

REPORT INFORMATION
  Report Type: 
  Country: None (occurrence: None)
  Receive Date: 20100309
  Receipt Date: 20100223
  Transmission Date: 20100710
  Serious: Yes (Other)
  Sender: FDA-Public Use
  Company Number: 430014J10USA

PATIENT
  Age: 49 Year
  Sex: Male
  Weight: 102 kg

DRUGS (4)
  1. NOVANTRONE [Suspect]
     Indication: MULTIPLE SCLEROSIS
     Dosage: SEE IMAGE
     Route: 042
     Dates: start: 20071231, end: 20090101
  2. NOVANTRONE [Suspect]
     Indication: MULTIPLE SCLEROSIS
     Dosage: SEE IMAGE
     Route: 042
     Dates: start: 20090623, end: 20090101
  3. SYNTHROID [Concomitant]
  4. TRILEPTAL [Concomitant]

REACTIONS (3)
  - EJECTION FRACTION DECREASED [None]
  - SUPRAVENTRICULAR TACHYCARDIA [None]
  - WHEEZING [None]
